FAERS Safety Report 14235075 (Version 1)
Quarter: 2017Q4

REPORT INFORMATION
  Report Type: Report from Study
  Country: IL (occurrence: IL)
  Receive Date: 20171129
  Receipt Date: 20171129
  Transmission Date: 20180321
  Serious: Yes (Other)
  Sender: FDA-Public Use
  Company Number: IL-CIPLA LTD.-2017IL21192

PATIENT

DRUGS (2)
  1. CURCUMIN/DESMETHOXYCURCUMIN/BISDESMETHOXYCURCUMIN [Suspect]
     Active Substance: CURCUMIN
     Indication: ADENOCARCINOMA PANCREAS
     Dosage: 4000 MG, BID
     Route: 048
  2. GEMCITABINE [Suspect]
     Active Substance: GEMCITABINE\GEMCITABINE HYDROCHLORIDE
     Indication: ADENOCARCINOMA PANCREAS
     Dosage: 1000 MG/M2, WEEKLY ? 3 OF 4 WK
     Route: 042

REACTIONS (1)
  - Neoplasm progression [Unknown]
